FAERS Safety Report 15148841 (Version 4)
Quarter: 2018Q3

REPORT INFORMATION
  Report Type: Spontaneous
  Country: US (occurrence: US)
  Receive Date: 20180716
  Receipt Date: 20180904
  Transmission Date: 20181010
  Serious: Yes (Hospitalization)
  Sender: FDA-Public Use
  Company Number: US-OTSUKA-2018_020278

PATIENT
  Sex: Female

DRUGS (1)
  1. ABILIFY MAINTENA [Suspect]
     Active Substance: ARIPIPRAZOLE
     Indication: PRODUCT USED FOR UNKNOWN INDICATION
     Dosage: UNK (STRENGTH: 400 MG)
     Route: 065
     Dates: start: 201712

REACTIONS (3)
  - Hospitalisation [Not Recovered/Not Resolved]
  - Inability to afford medication [Unknown]
  - Anger [Not Recovered/Not Resolved]
